FAERS Safety Report 6661444-0 (Version None)
Quarter: 2010Q1

REPORT INFORMATION
  Report Type: 
  Country: None (occurrence: None)
  Receive Date: 20100331
  Receipt Date: 20100322
  Transmission Date: 20100710
  Serious: Yes (Hospitalization, Other)
  Sender: FDA-Public Use
  Company Number: US-MERCK-0705USA00815

PATIENT
  Age: 67 Year
  Sex: Female
  Weight: 65 kg

DRUGS (15)
  1. FOSAMAX [Suspect]
     Indication: OSTEOPOROSIS
     Route: 048
     Dates: end: 20070312
  2. FOSAMAX [Suspect]
     Route: 048
     Dates: start: 20000821
  3. FOSAMAX [Suspect]
     Indication: OSTEOPENIA
     Route: 048
     Dates: end: 20070312
  4. FOSAMAX [Suspect]
     Route: 048
     Dates: start: 20000821
  5. FOSAMAX PLUS D [Suspect]
     Indication: OSTEOPOROSIS
     Route: 048
     Dates: start: 20070312
  6. FOSAMAX PLUS D [Suspect]
     Indication: OSTEOPENIA
     Route: 048
     Dates: start: 20070312
  7. CENTRUM SILVER [Concomitant]
     Route: 065
  8. POSTURE D [Concomitant]
     Route: 065
  9. EVISTA [Concomitant]
     Indication: OSTEOPOROSIS
     Route: 065
     Dates: start: 20000101
  10. ZANTAC [Concomitant]
     Route: 065
  11. GASTROINTESTINAL PREPARATIONS (UNSPECIFIED) [Concomitant]
     Route: 065
  12. KLONOPIN [Concomitant]
     Route: 065
  13. TRIAMCINOLONE ACETONIDE [Concomitant]
     Route: 065
  14. BISACODYL [Concomitant]
     Route: 065
  15. CLONAZEPAM [Concomitant]
     Indication: CONVULSION
     Route: 065
     Dates: start: 19990101

REACTIONS (10)
  - BLOOD CHOLESTEROL INCREASED [None]
  - COLON ADENOMA [None]
  - COLONIC POLYP [None]
  - CONSTIPATION [None]
  - HIATUS HERNIA [None]
  - MELANOSIS COLI [None]
  - ORAL TORUS [None]
  - OSTEONECROSIS [None]
  - PARATHYROID TUMOUR BENIGN [None]
  - UTERINE POLYP [None]
